FAERS Safety Report 17601684 (Version 2)
Quarter: 2020Q2

REPORT INFORMATION
  Report Type: Spontaneous
  Country: US (occurrence: US)
  Receive Date: 20200331
  Receipt Date: 20200401
  Transmission Date: 20200713
  Serious: No
  Sender: FDA-Public Use
  Company Number: NVSC2020US088178

PATIENT
  Sex: Female

DRUGS (1)
  1. XIIDRA [Suspect]
     Active Substance: LIFITEGRAST
     Indication: PRODUCT USED FOR UNKNOWN INDICATION
     Dosage: 1 GTT, BID
     Route: 047
     Dates: start: 20200303, end: 2020

REACTIONS (7)
  - Visual impairment [Unknown]
  - Product label issue [Unknown]
  - Product dose omission [Unknown]
  - Memory impairment [Unknown]
  - Product dropper issue [Unknown]
  - Eye disorder [Unknown]
  - Product container issue [Unknown]

NARRATIVE: CASE EVENT DATE: 2020
